FAERS Safety Report 4482407-X (Version None)
Quarter: 2004Q4

REPORT INFORMATION
  Report Type: 
  Country: None (occurrence: None)
  Receive Date: 20041022
  Receipt Date: 20040621
  Transmission Date: 20050328
  Serious: No
  Sender: FDA-Public Use
  Company Number: US-BRISTOL-MYERS SQUIBB COMPANY-12620704

PATIENT
  Age: 31 Year
  Sex: Male
  Weight: 73 kg

DRUGS (1)
  1. BUSPAR [Suspect]
     Indication: GENERALISED ANXIETY DISORDER
     Route: 048
     Dates: start: 20040619

REACTIONS (2)
  - DIZZINESS [None]
  - FEELING ABNORMAL [None]
